FAERS Safety Report 4867477-9 (Version None)
Quarter: 2005Q4

REPORT INFORMATION
  Report Type: 
  Country: None (occurrence: None)
  Receive Date: 20051222
  Receipt Date: 20051209
  Transmission Date: 20060501
  Serious: Yes (Death)
  Sender: FDA-Public Use
  Company Number: 2005S1011783

PATIENT
  Age: 56 Year
  Sex: Male

DRUGS (7)
  1. CLOZAPINE [Suspect]
     Dosage: 200 MG;QD;ORAL, 400 MG;QD;ORAL
     Route: 048
     Dates: end: 20051001
  2. CLOZAPINE [Suspect]
     Dosage: 200 MG;QD;ORAL, 400 MG;QD;ORAL
     Route: 048
     Dates: end: 20051001
  3. TAMSULOSIN HCL [Concomitant]
  4. .. [Concomitant]
  5. TOLTERODINE TARTRATE [Concomitant]
  6. PROPRANOLOL [Concomitant]
  7. QUETIAPINE FUMARATE [Concomitant]

REACTIONS (1)
  - DEATH [None]
